FAERS Safety Report 21048491 (Version 6)
Quarter: 2023Q2

REPORT INFORMATION
  Report Type: Spontaneous
  Country: JP (occurrence: JP)
  Receive Date: 20220706
  Receipt Date: 20230505
  Transmission Date: 20230721
  Serious: Yes (Other)
  Sender: FDA-Public Use
  Company Number: JP-SA-2022SA239233

PATIENT
  Age: 13 Month
  Sex: Female

DRUGS (14)
  1. SABRIL [Suspect]
     Active Substance: VIGABATRIN
     Indication: Infantile spasms
     Dosage: DAILY DOSE: 50 MG/KG/DAY, ACTUAL DOSE: 450 MG/DAY, DAILY DOSING FREQUENCY: TWICE
     Route: 048
     Dates: start: 20211214, end: 20220226
  2. SABRIL [Suspect]
     Active Substance: VIGABATRIN
     Dosage: UNK UNK, BID
     Route: 048
     Dates: start: 20220227, end: 20220324
  3. SABRIL [Suspect]
     Active Substance: VIGABATRIN
     Dosage: DAILY DOSE: 100 MG/KG/DAY, ACTUAL DOSE: 1000 MG/DAY, DAILY DOSING FREQUENCY: TWICE
     Route: 048
     Dates: start: 20220325, end: 20220404
  4. SABRIL [Suspect]
     Active Substance: VIGABATRIN
     Dosage: UNK UNK, BID
     Route: 048
     Dates: start: 20220405, end: 20220606
  5. SABRIL [Suspect]
     Active Substance: VIGABATRIN
     Dosage: UNK UNK, BID
     Route: 048
     Dates: start: 20220607, end: 20220613
  6. SABRIL [Suspect]
     Active Substance: VIGABATRIN
     Dosage: UNK UNK, BID
     Route: 048
     Dates: start: 20220614, end: 20220620
  7. SABRIL [Suspect]
     Active Substance: VIGABATRIN
     Dosage: UNK UNK, BID
     Route: 048
     Dates: start: 20220621, end: 20220627
  8. SABRIL [Suspect]
     Active Substance: VIGABATRIN
     Dosage: UNK UNK, BID
     Route: 048
     Dates: start: 20220628, end: 20220704
  9. SABRIL [Suspect]
     Active Substance: VIGABATRIN
     Dosage: UNK UNK, BID
     Route: 048
     Dates: start: 20220705, end: 20220711
  10. SABRIL [Suspect]
     Active Substance: VIGABATRIN
     Dosage: UNK UNK, BID
     Route: 048
     Dates: start: 20220712, end: 20220718
  11. SABRIL [Suspect]
     Active Substance: VIGABATRIN
     Dosage: UNK UNK, BID
     Route: 048
     Dates: start: 20220719, end: 20220726
  12. CLOBAZAM [Concomitant]
     Active Substance: CLOBAZAM
     Indication: Infantile spasms
     Dosage: DAILY DOSE: 2 MG
     Route: 048
     Dates: start: 20220408
  13. VALPROATE SODIUM [Concomitant]
     Active Substance: VALPROATE SODIUM
     Indication: Infantile spasms
     Dosage: DAILY DOSE: 440 MG
     Route: 048
     Dates: start: 20220606
  14. CARNITINE HYDROCHLORIDE [Concomitant]
     Indication: Prophylaxis
     Dosage: DAILY DOSE: 300 MG
     Route: 048
     Dates: start: 20220606

REACTIONS (3)
  - Optic atrophy [Not Recovered/Not Resolved]
  - Retinogram abnormal [Recovered/Resolved]
  - Fundoscopy abnormal [Not Recovered/Not Resolved]

NARRATIVE: CASE EVENT DATE: 20220607
